FAERS Safety Report 7338251-9 (Version None)
Quarter: 2011Q1

REPORT INFORMATION
  Report Type: 
  Country: None (occurrence: None)
  Receive Date: 20110308
  Receipt Date: 20110223
  Transmission Date: 20110831
  Serious: Yes (Hospitalization, Other)
  Sender: FDA-Public Use
  Company Number: FR-ELI_LILLY_AND_COMPANY-FR201103001007

PATIENT
  Sex: Female

DRUGS (8)
  1. ALDACTAZINE [Concomitant]
     Indication: HYPERTENSION
     Route: 048
  2. TYSABRI [Concomitant]
  3. NEXIUM [Concomitant]
     Indication: PROPHYLAXIS AGAINST GASTROINTESTINAL ULCER
     Route: 048
  4. REBIF [Concomitant]
     Indication: MULTIPLE SCLEROSIS
  5. MANTADIX [Concomitant]
     Indication: MULTIPLE SCLEROSIS
     Route: 048
  6. NEURONTIN [Concomitant]
     Indication: NEURALGIA
     Route: 048
  7. CYMBALTA [Suspect]
     Indication: DEPRESSION
     Route: 048
  8. ZOLPIDEM [Concomitant]
     Route: 048

REACTIONS (4)
  - MYOCLONIC EPILEPSY [None]
  - RENAL FAILURE [None]
  - KERATITIS HERPETIC [None]
  - ENCEPHALOPATHY [None]
